FAERS Safety Report 4611896-2 (Version None)
Quarter: 2005Q2

REPORT INFORMATION
  Report Type: 
  Country: None (occurrence: None)
  Receive Date: 20050308
  Receipt Date: 20041216
  Transmission Date: 20051028
  Serious: Yes (Other)
  Sender: FDA-Public Use
  Company Number: 2004UW25650

PATIENT
  Age: 60 Year
  Sex: Female
  Weight: 61.6 kg

DRUGS (4)
  1. CRESTOR [Suspect]
     Indication: HYPERCHOLESTEROLAEMIA
     Dosage: 10 MG
  2. ZOLOFT [Concomitant]
  3. NEXIUM [Concomitant]
  4. ACTONEL [Concomitant]

REACTIONS (1)
  - ALOPECIA [None]
